FAERS Safety Report 18288612 (Version 1)
Quarter: 2020Q3

REPORT INFORMATION
  Report Type: Spontaneous
  Country: BG (occurrence: BG)
  Receive Date: 20200919
  Receipt Date: 20200919
  Transmission Date: 20201103
  Serious: Yes (Death, Disabling)
  Sender: FDA-Public Use
  Company Number: None

PATIENT
  Sex: Male
  Weight: 80 kg

DRUGS (1)
  1. ALECTINIB. [Suspect]
     Active Substance: ALECTINIB
     Indication: INFLAMMATORY MYOFIBROBLASTIC TUMOUR
     Route: 048
     Dates: start: 20190806, end: 20190916

REACTIONS (4)
  - Weight decreased [None]
  - Haemoglobin increased [None]
  - Heart rate increased [None]
  - Visual impairment [None]
